FAERS Safety Report 14665071 (Version 2)
Quarter: 2020Q1

REPORT INFORMATION
  Report Type: Spontaneous
  Country: US (occurrence: US)
  Receive Date: 20180321
  Receipt Date: 20200322
  Transmission Date: 20200409
  Serious: Yes (Death, Other)
  Sender: FDA-Public Use
  Company Number: US-BRISTOL-MYERS SQUIBB COMPANY-BMS-2018-026498

PATIENT
  Sex: Male

DRUGS (5)
  1. YERVOY [Suspect]
     Active Substance: IPILIMUMAB
     Indication: GALLBLADDER CANCER
     Dosage: 78.9 MG, Q3WK
     Route: 042
     Dates: start: 20180206, end: 20180227
  2. SODIUM CHLORIDE. [Concomitant]
     Active Substance: SODIUM CHLORIDE
     Indication: PRODUCT USED FOR UNKNOWN INDICATION
     Route: 065
  3. PHOSPHATE [SODIUM PHOSPHATE;SODIUM PHOSPHATE MONOBASIC (DIHYDRATE)] [Concomitant]
     Indication: PRODUCT USED FOR UNKNOWN INDICATION
     Route: 065
  4. LYRICA [Concomitant]
     Active Substance: PREGABALIN
     Indication: PRODUCT USED FOR UNKNOWN INDICATION
     Route: 065
  5. OPDIVO [Suspect]
     Active Substance: NIVOLUMAB
     Indication: GALLBLADDER CANCER
     Dosage: 78.9 MG, Q3WK
     Route: 042
     Dates: start: 20180206, end: 20180227

REACTIONS (2)
  - Intentional product use issue [Unknown]
  - Death [Fatal]
